FAERS Safety Report 8255702-6 (Version None)
Quarter: 2012Q2

REPORT INFORMATION
  Report Type: 
  Country: None (occurrence: None)
  Receive Date: 20120403
  Receipt Date: 20120403
  Transmission Date: 20120825
  Serious: Yes (Other)
  Sender: FDA-Public Use
  Company Number: None

PATIENT
  Age: 49 Year
  Sex: Female
  Weight: 97.522 kg

DRUGS (2)
  1. CYMBALTA [Suspect]
     Indication: ANXIETY
     Dosage: 30 MG
     Route: 048
     Dates: start: 20100801, end: 20120330
  2. CYMBALTA [Suspect]
     Indication: ANGER
     Dosage: 30 MG
     Route: 048
     Dates: start: 20100801, end: 20120330

REACTIONS (4)
  - CONSTIPATION [None]
  - VOMITING [None]
  - DYSURIA [None]
  - VISION BLURRED [None]
